FAERS Safety Report 15882958 (Version 1)
Quarter: 2019Q1

REPORT INFORMATION
  Report Type: Spontaneous
  Country: US (occurrence: US)
  Receive Date: 20190129
  Receipt Date: 20190129
  Transmission Date: 20190417
  Serious: Yes (Other)
  Sender: FDA-Public Use
  Company Number: US-DRREDDYS-USA/USA/19/0107161

PATIENT
  Sex: Male

DRUGS (1)
  1. OLANZAPINE FILM-COATED TABLET 20 MG [Suspect]
     Active Substance: OLANZAPINE
     Indication: PRODUCT USED FOR UNKNOWN INDICATION
     Dosage: TWO TABLETS IN THE EVENING
     Route: 065
     Dates: start: 20190121

REACTIONS (11)
  - Hypertension [Unknown]
  - Incorrect dose administered [Unknown]
  - Asthenia [Unknown]
  - Loss of personal independence in daily activities [Unknown]
  - Decreased appetite [Unknown]
  - Central obesity [Unknown]
  - Weight increased [Unknown]
  - Malaise [Unknown]
  - Somnolence [Unknown]
  - Diabetes mellitus [Unknown]
  - Skin striae [Unknown]
